FAERS Safety Report 9029141 (Version 2)
Quarter: 2013Q1

REPORT INFORMATION
  Report Type: Spontaneous
  Country: CA (occurrence: CA)
  Receive Date: 20130124
  Receipt Date: 20130131
  Transmission Date: 20140127
  Serious: Yes (Hospitalization)
  Sender: FDA-Public Use
  Company Number: CA-AMGEN-CANSP2013001482

PATIENT
  Age: 62 Year
  Sex: Female
  Weight: 60.5 kg

DRUGS (3)
  1. NEULASTA [Suspect]
     Indication: PROPHYLAXIS
     Dosage: 6 MG, ONE TIME DOSE
     Route: 058
     Dates: start: 20130107, end: 20130107
  2. DOXORUBICIN [Suspect]
     Indication: BREAST CANCER
     Dosage: 88 MG, ONE TIME DOSE
     Route: 042
     Dates: start: 20130107, end: 20130107
  3. CYCLOPHOSPHAMIDE [Suspect]
     Indication: BREAST CANCER
     Dosage: 882 MG, ONE TIME DOSE
     Route: 042
     Dates: start: 20130107, end: 20130107

REACTIONS (5)
  - Febrile neutropenia [Not Recovered/Not Resolved]
  - Infection [Unknown]
  - Cough [Unknown]
  - Oropharyngeal pain [Unknown]
  - Therapeutic response decreased [Unknown]
